FAERS Safety Report 21100010 (Version 1)
Quarter: 2022Q3

REPORT INFORMATION
  Report Type: Other
  Country: None (occurrence: CN)
  Receive Date: 20220719
  Receipt Date: 20220719
  Transmission Date: 20221026
  Serious: Yes (Hospitalization, Other)
  Sender: FDA-Public Use
  Company Number: CN-Breckenridge Pharmaceutical, Inc.-2131013

PATIENT
  Age: 31 Year
  Sex: Female

DRUGS (1)
  1. SUCCINYLCHOLINE CHLORIDE [Suspect]
     Active Substance: SUCCINYLCHOLINE CHLORIDE
     Indication: Intentional self-injury
     Route: 048

REACTIONS (2)
  - Toxicity to various agents [Recovering/Resolving]
  - Hypoxic-ischaemic encephalopathy [Recovering/Resolving]
